FAERS Safety Report 19474015 (Version 1)
Quarter: 2021Q2

REPORT INFORMATION
  Report Type: Spontaneous
  Country: ZA (occurrence: ZA)
  Receive Date: 20210629
  Receipt Date: 20210629
  Transmission Date: 20210717
  Serious: Yes (Death, Other)
  Sender: FDA-Public Use
  Company Number: NVSC2021ZA138036

PATIENT
  Age: 87 Year
  Sex: Male

DRUGS (6)
  1. VITAMIN D [Concomitant]
     Active Substance: VITAMIN D NOS
     Indication: SUPPORTIVE CARE
     Dosage: 5000 IU, QD
     Route: 048
     Dates: start: 20210525, end: 20210604
  2. DEXAMETHASONE. [Concomitant]
     Active Substance: DEXAMETHASONE
     Indication: PRODUCT USED FOR UNKNOWN INDICATION
     Dosage: 8 MG, QD
     Route: 042
     Dates: start: 20210525, end: 20210604
  3. NOXFIBRA [Suspect]
     Active Substance: ENOXAPARIN SODIUM
     Indication: COVID-19
     Dosage: 80 MG, BID
     Route: 058
     Dates: start: 20210529
  4. NOXFIBRA [Suspect]
     Active Substance: ENOXAPARIN SODIUM
     Indication: PROPHYLAXIS
     Dosage: 40 MG, QD
     Route: 058
     Dates: start: 20210525, end: 20210528
  5. VITAMIN C [Concomitant]
     Active Substance: ASCORBIC ACID
     Indication: SUPPORTIVE CARE
     Dosage: 1 G, TID
     Route: 048
     Dates: start: 20210525
  6. ZINC. [Concomitant]
     Active Substance: ZINC
     Indication: SUPPORTIVE CARE
     Dosage: 50 MG, QD
     Route: 048
     Dates: start: 20210525, end: 20210604

REACTIONS (3)
  - Sepsis [Fatal]
  - Pulmonary embolism [Recovering/Resolving]
  - Oxygen saturation decreased [Recovering/Resolving]

NARRATIVE: CASE EVENT DATE: 202106
